FAERS Safety Report 7007629-5 (Version None)
Quarter: 2010Q3

REPORT INFORMATION
  Report Type: 
  Country: None (occurrence: None)
  Receive Date: 20100922
  Receipt Date: 20100914
  Transmission Date: 20110219
  Serious: Yes (Other)
  Sender: FDA-Public Use
  Company Number: JP-PFIZER INC-2010116250

PATIENT
  Age: 79 Year
  Sex: Female
  Weight: 55 kg

DRUGS (11)
  1. NORVASC [Suspect]
     Indication: HYPERTENSION
     Dosage: 2.5 MG, 2X/DAY
     Route: 048
     Dates: start: 20061003, end: 20071005
  2. NORVASC [Suspect]
     Dosage: 2.5 MG, 1X/DAY
     Route: 048
     Dates: end: 20061002
  3. FAMOTIDINE [Suspect]
     Indication: REFLUX OESOPHAGITIS
     Dosage: 20 MG, DAILY
     Route: 048
     Dates: end: 20070731
  4. FAMOTIDINE [Suspect]
     Indication: REFLUX OESOPHAGITIS
     Dosage: 20 MG, 2X/DAY
     Route: 048
     Dates: start: 20070731
  5. AMLODIPINE BESYLATE [Suspect]
     Indication: HYPERTENSION
     Dosage: 5 MG, 1X/DAY
     Route: 048
     Dates: start: 20071012, end: 20071101
  6. METHYCOBAL [Concomitant]
     Indication: SPINAL OSTEOARTHRITIS
     Dosage: 500 UG, 3X/DAY
     Route: 048
     Dates: end: 20061127
  7. NEUROTROPIN [Concomitant]
     Indication: SPINAL OSTEOARTHRITIS
     Dosage: 4 UNK, 3X/DAY
     Route: 048
     Dates: end: 20061127
  8. GASMOTIN [Concomitant]
     Indication: REFLUX OESOPHAGITIS
     Dosage: 5 MG, 3X/DAY
     Route: 048
     Dates: end: 20070409
  9. CARNACULIN [Concomitant]
     Indication: HYPERTENSION
     Dosage: 50 UNK, 3X/DAY
     Route: 048
  10. URSO 250 [Concomitant]
     Indication: AUTOIMMUNE HEPATITIS
     Dosage: 200 UG, 3X/DAY
     Route: 048
     Dates: end: 20070528
  11. DEPAS [Concomitant]
     Dosage: 1 MG, 1X/DAY
     Route: 048

REACTIONS (1)
  - PARKINSONISM [None]
